FAERS Safety Report 14197026 (Version 1)
Quarter: 2017Q4

REPORT INFORMATION
  Report Type: Spontaneous
  Country: US (occurrence: US)
  Receive Date: 20171116
  Receipt Date: 20171116
  Transmission Date: 20180321
  Serious: No
  Sender: FDA-Public Use
  Company Number: US-TARO-2017TAR00247

PATIENT
  Sex: Male

DRUGS (2)
  1. TRIAMCINOLONE ACETONIDE DENTAL PASTE USP 0.1% [Suspect]
     Active Substance: TRIAMCINOLONE ACETONIDE
     Indication: ORAL INFECTION
     Route: 061
  2. TRIAMCINOLONE ACETONIDE DENTAL PASTE USP 0.1% [Suspect]
     Active Substance: TRIAMCINOLONE ACETONIDE
     Indication: APHTHOUS ULCER

REACTIONS (3)
  - Oral discomfort [Recovered/Resolved]
  - Drug ineffective [Not Recovered/Not Resolved]
  - Lip discolouration [Recovered/Resolved]
